FAERS Safety Report 8129920 (Version 2)
Quarter: 2014Q2

REPORT INFORMATION
  Report Type: Spontaneous
  Country: FR (occurrence: FR)
  Receive Date: 20110911
  Receipt Date: 20140626
  Transmission Date: 20141212
  Serious: Yes (Hospitalization)
  Sender: FDA-Public Use
  Company Number: FR-CELGENEUS-056-21880-11090063

PATIENT
  Age: 81 Year
  Sex: Male

DRUGS (9)
  1. FORLAX [Concomitant]
     Indication: PRODUCT USED FOR UNKNOWN INDICATION
     Dosage: 10 GRAM
     Route: 048
  2. MAGNE B6 [Concomitant]
     Indication: PRODUCT USED FOR UNKNOWN INDICATION
     Dosage: 1 DOSAGE FORMS
     Route: 048
  3. ORACILLINE [Concomitant]
     Indication: PAIN
     Dosage: 1 MILLILITER
     Route: 065
  4. UN-ALFA [Concomitant]
     Indication: PAIN
     Route: 048
     Dates: start: 200902
  5. REVLIMID [Suspect]
     Indication: PLASMA CELL MYELOMA
     Route: 048
     Dates: start: 200901
  6. REVLIMID [Suspect]
     Route: 048
     Dates: start: 20100618, end: 201007
  7. KARDEGIC [Concomitant]
     Indication: TRANSIENT ISCHAEMIC ATTACK
     Dosage: 160 MILLIGRAM
     Route: 048
     Dates: start: 200806, end: 201104
  8. TADENAN [Concomitant]
     Indication: PRODUCT USED FOR UNKNOWN INDICATION
     Dosage: 100 MILLIGRAM
     Route: 048
  9. PARACETAMOL [Concomitant]
     Indication: PAIN
     Route: 048
     Dates: start: 200902

REACTIONS (1)
  - Gastric cancer stage 0 [Not Recovered/Not Resolved]
